FAERS Safety Report 6315401-4 (Version None)
Quarter: 2009Q3

REPORT INFORMATION
  Report Type: 
  Country: None (occurrence: None)
  Receive Date: 20090819
  Receipt Date: 20090818
  Transmission Date: 20100115
  Serious: No
  Sender: FDA-Public Use
  Company Number: US-B.I. PHARMACEUTICALS,INC./RIDGEFIELD-2009-BP-07349BP

PATIENT
  Age: 68 Year
  Sex: Female

DRUGS (6)
  1. SPIRIVA [Suspect]
     Indication: COUGH
     Dosage: 18 MCG
     Route: 055
     Dates: start: 20081001
  2. LEVOXYL [Concomitant]
     Indication: BASEDOW'S DISEASE
  3. METFORMIN [Concomitant]
     Indication: DIABETES MELLITUS
  4. GLYBURIDE AND METFORMIN HCL [Concomitant]
     Indication: DIABETES MELLITUS
  5. ALTACE [Concomitant]
     Indication: PROPHYLAXIS
  6. METOPROLOL [Concomitant]
     Indication: PROPHYLAXIS

REACTIONS (2)
  - COUGH [None]
  - SLEEP DISORDER DUE TO GENERAL MEDICAL CONDITION, INSOMNIA TYPE [None]
